FAERS Safety Report 9503091 (Version 3)
Quarter: 2013Q3

REPORT INFORMATION
  Report Type: Report from Study
  Country: NZ (occurrence: NZ)
  Receive Date: 20130906
  Receipt Date: 20130923
  Transmission Date: 20140515
  Serious: Yes (Hospitalization)
  Sender: FDA-Public Use
  Company Number: NZ-009507513-1309NZL000786

PATIENT
  Age: 56 Year
  Sex: Male
  Weight: 66 kg

DRUGS (17)
  1. PEGINTERFERON ALFA-2A [Suspect]
     Indication: CHRONIC HEPATITIS C
     Dosage: 90 MICROGRAM, QW
     Route: 058
     Dates: start: 20130405, end: 20130412
  2. PEGINTERFERON ALFA-2A [Suspect]
     Dosage: 180 MICROGRAM, QW
     Route: 058
     Dates: start: 20130419, end: 20130524
  3. PEGINTERFERON ALFA-2A [Suspect]
     Dosage: 135 MICROGRAM, QW
     Route: 058
     Dates: start: 20130531
  4. MK-3034 [Suspect]
     Indication: CHRONIC HEPATITIS C
     Dosage: 4 DF, QAM, CAPSULES
     Route: 048
     Dates: start: 20130503
  5. MK-3034 [Suspect]
     Dosage: 4 DF, AFTERNOON, CAPSULES
     Route: 048
     Dates: start: 20130503
  6. MK-3034 [Suspect]
     Dosage: 4 DF, QPM, CAPSULES
     Route: 048
     Dates: start: 20130503
  7. REBETOL [Suspect]
     Indication: CHRONIC HEPATITIS C
     Dosage: 3 CAPS, QD
     Route: 048
     Dates: start: 20130405, end: 20130405
  8. REBETOL [Suspect]
     Dosage: 5 CAPS (PM 3 CAPS; AM 2 CAPS), QD
     Route: 048
     Dates: start: 20130406, end: 20130502
  9. REBETOL [Suspect]
     Dosage: 5 CAPS (PM 3 CAPS; AM 2 CAPS), QD
     Route: 048
     Dates: start: 20130406, end: 20130502
  10. REBETOL [Suspect]
     Dosage: 2 DF, QPM
     Route: 048
     Dates: start: 20130503, end: 20130510
  11. REBETOL [Suspect]
     Dosage: 1 DF, QAM
     Route: 048
     Dates: start: 20130503, end: 20130530
  12. REBETOL [Suspect]
     Dosage: 1 DF, QPM
     Route: 048
     Dates: start: 20130511, end: 20130626
  13. REBETOL [Suspect]
     Dosage: 1 CAPS, QAM
     Route: 048
     Dates: start: 20130531, end: 20130626
  14. CITALOPRAM [Concomitant]
     Indication: MOOD ALTERED
     Dosage: UNK, QD
     Route: 048
     Dates: start: 20100301
  15. ACETAMINOPHEN [Concomitant]
     Indication: PROPHYLAXIS
     Dosage: UNK, PRN
     Route: 048
     Dates: start: 20130404
  16. ZOPICLONE [Concomitant]
     Indication: INSOMNIA
     Dosage: UNK, PRN
     Route: 048
     Dates: start: 20130404
  17. METOCLOPRAMIDE [Concomitant]
     Indication: NAUSEA
     Dosage: UNK, PRN
     Route: 048
     Dates: start: 20130404

REACTIONS (3)
  - Oral pain [Recovering/Resolving]
  - Pyrexia [Recovered/Resolved]
  - Tooth infection [Recovered/Resolved]
